FAERS Safety Report 8914699 (Version 1)
Quarter: 2012Q4

REPORT INFORMATION
  Report Type: Report from Study
  Country: CA (occurrence: CA)
  Receive Date: 20121119
  Receipt Date: 20121119
  Transmission Date: 20130627
  Serious: Yes (Other)
  Sender: FDA-Public Use
  Company Number: CA-ROCHE-1152587

PATIENT
  Sex: Male

DRUGS (6)
  1. VEMURAFENIB [Suspect]
     Indication: METASTATIC MALIGNANT MELANOMA
     Route: 048
     Dates: start: 201208, end: 201210
  2. MAXERAN [Concomitant]
     Route: 042
  3. PANTOPRAZOLE [Concomitant]
  4. MORPHINE [Concomitant]
  5. IBUPROFEN [Concomitant]
  6. PERCOCET [Concomitant]

REACTIONS (2)
  - Disease progression [Not Recovered/Not Resolved]
  - Drug ineffective [Unknown]
